FAERS Safety Report 16756543 (Version 1)
Quarter: 2019Q3

REPORT INFORMATION
  Report Type: Spontaneous
  Country: ES (occurrence: ES)
  Receive Date: 20190829
  Receipt Date: 20190829
  Transmission Date: 20191005
  Serious: Yes (Death, Hospitalization)
  Sender: FDA-Public Use
  Company Number: ES-MYLANLABS-2019M1081296

PATIENT
  Age: 74 Year
  Sex: Male
  Weight: 77.5 kg

DRUGS (2)
  1. PREDNISONE. [Suspect]
     Active Substance: PREDNISONE
     Indication: PROPHYLAXIS AGAINST TRANSPLANT REJECTION
     Dosage: 5 MILLIGRAM, QD
     Route: 048
     Dates: start: 201501, end: 20181227
  2. TACROLIMUS. [Interacting]
     Active Substance: TACROLIMUS
     Indication: PROPHYLAXIS AGAINST TRANSPLANT REJECTION
     Dosage: 13 MILLIGRAM, QD
     Route: 048
     Dates: start: 201710, end: 20181225

REACTIONS (2)
  - Pneumonia staphylococcal [Fatal]
  - Drug interaction [Unknown]

NARRATIVE: CASE EVENT DATE: 20181219
